FAERS Safety Report 16549850 (Version 2)
Quarter: 2019Q3

REPORT INFORMATION
  Report Type: Report from Study
  Country: JP (occurrence: JP)
  Receive Date: 20190710
  Receipt Date: 20190904
  Transmission Date: 20191004
  Serious: Yes (Other)
  Sender: FDA-Public Use
  Company Number: JP-BEH-2019102814

PATIENT
  Age: 79 Year
  Sex: Female
  Weight: 46 kg

DRUGS (87)
  1. BERIPLEX P/N [Suspect]
     Active Substance: COAGULATION FACTOR IX HUMAN\COAGULATION FACTOR VII HUMAN\COAGULATION FACTOR X HUMAN\PROTEIN C\PROTEIN S HUMAN\PROTHROMBIN
     Indication: SURGERY
     Dosage: 1500 INTERNATION UNIT
     Route: 042
     Dates: start: 20180804
  2. KEPPRA [Concomitant]
     Active Substance: LEVETIRACETAM
     Dosage: 500 MILLILITER, BID
     Route: 042
     Dates: start: 20180805, end: 20180806
  3. TAKECAB [Concomitant]
     Active Substance: VONOPRAZAN FUMURATE
     Dosage: 10 MILLIGRAM, QD AFTER BREAKFAST
     Dates: start: 20180806, end: 20180904
  4. EVISTA [Concomitant]
     Active Substance: RALOXIFENE HYDROCHLORIDE
     Dosage: 60 MILLIGRAM, QD AFTER BREAKFAST
     Dates: start: 20180806, end: 20180904
  5. NORMAL SALINE [Concomitant]
     Active Substance: SODIUM CHLORIDE
     Dosage: 700 MILLILITER, QD
     Dates: start: 20180805, end: 20180805
  6. NORMAL SALINE [Concomitant]
     Active Substance: SODIUM CHLORIDE
     Dosage: 500 MILLILITER, QD
     Dates: start: 20180806, end: 20180806
  7. NORMAL SALINE [Concomitant]
     Active Substance: SODIUM CHLORIDE
     Dosage: 100 MILLILITER, BID
     Dates: start: 20180827, end: 20180904
  8. NICARDIPINE [Concomitant]
     Active Substance: NICARDIPINE
     Dosage: 2 MILLIGRAM, BID
     Dates: start: 20180807, end: 20180807
  9. NICARDIPINE [Concomitant]
     Active Substance: NICARDIPINE
     Dosage: 2 MILLIGRAM, TID
     Dates: start: 20180808, end: 20180808
  10. NICARDIPINE [Concomitant]
     Active Substance: NICARDIPINE
     Dosage: 2 MILLIGRAM, QD
     Dates: start: 20180810, end: 20180810
  11. NICARDIPINE [Concomitant]
     Active Substance: NICARDIPINE
     Dosage: 25 MILLIGRAM, SINGLE
     Dates: start: 20180829, end: 20180829
  12. GLYCEREB [Concomitant]
     Active Substance: FRUCTOSE\GLYCERIN
     Dosage: 200 MILLILITER, QD
     Route: 041
     Dates: start: 20180810, end: 20180812
  13. TAZOPIPE [Concomitant]
     Active Substance: PIPERACILLIN SODIUM\TAZOBACTAM SODIUM
     Indication: INFECTION PROPHYLAXIS
     Dosage: 4.5 MEIJI TID
     Route: 042
     Dates: start: 20180806, end: 20180809
  14. POTASSIUM L ASPARTATE K [Concomitant]
     Active Substance: POTASSIUM ASPARTATE
     Dosage: 40 MILLIEQUIVALENT, TOT
     Dates: start: 20180404, end: 20180404
  15. VALTREX [Concomitant]
     Active Substance: VALACYCLOVIR HYDROCHLORIDE
     Indication: HERPES VIRUS INFECTION
     Dosage: 500 MILLIGRAM, QD
     Dates: start: 20180830
  16. SG [APRONAL;CAFFEINE;PARACETAMOL;PROPYPHENAZONE] [Concomitant]
     Dosage: 1 GRAM, SINGLE
     Dates: start: 20180816, end: 20180816
  17. SG [APRONAL;CAFFEINE;PARACETAMOL;PROPYPHENAZONE] [Concomitant]
     Dosage: 1 GRAM, SINGLE
     Dates: start: 20180903, end: 20180903
  18. CIBENOL [Concomitant]
     Active Substance: CIFENLINE
     Dosage: 100 MILLIGRAM, TID AFTER BREAKFAST/LUNCH/DINNER
     Dates: start: 20180815, end: 20180831
  19. BIOFERMIN R [Concomitant]
     Active Substance: DIETARY SUPPLEMENT\PROBIOTICS
     Dosage: 6 GRAM, QD
     Dates: start: 20180831, end: 20180831
  20. NORMAL SALINE [Concomitant]
     Active Substance: SODIUM CHLORIDE
     Dosage: 60 MILLILITER, BID
     Dates: start: 20180826, end: 20180826
  21. HORIZON [Concomitant]
     Active Substance: DIAZEPAM
     Dosage: 10 MILLIGRAM, SINGLE
     Dates: start: 20180804
  22. METILON [Concomitant]
     Active Substance: METAMIZOLE SODIUM
     Indication: HYPERTHERMIA
     Dosage: 1 MILLILITER, SINGLE
     Dates: start: 20180805, end: 20180805
  23. METILON [Concomitant]
     Active Substance: METAMIZOLE SODIUM
     Indication: ANTIPYRESIS
     Dosage: 1 MILLILITER, SINGLE
     Dates: start: 20180825, end: 20180825
  24. HEPAFLUSH [Concomitant]
     Active Substance: HEPARIN SODIUM
     Dosage: 100 INTERNATIONAL UNIT PER MILLILITRE, BID
     Dates: start: 20180806, end: 20180806
  25. KCL [Concomitant]
     Active Substance: POTASSIUM CHLORIDE
     Dosage: 40 MILLIEQUIVALENT, BID
     Dates: start: 20180831, end: 20180831
  26. SG [APRONAL;CAFFEINE;PARACETAMOL;PROPYPHENAZONE] [Concomitant]
     Dosage: 1 GRAM, SINGLE
     Dates: start: 20180809, end: 20180809
  27. SG [APRONAL;CAFFEINE;PARACETAMOL;PROPYPHENAZONE] [Concomitant]
     Dosage: 2 GRAM, QD
     Dates: start: 20180827, end: 20180827
  28. CARVEDILOL. [Concomitant]
     Active Substance: CARVEDILOL
     Dosage: 5 MILLIGRAM, SINGLE
     Dates: start: 20180830, end: 20180830
  29. LASIX [Concomitant]
     Active Substance: FUROSEMIDE
     Indication: FLUID OVERLOAD
     Dosage: 10 MILLIGRAM, SINGLE AFTER BREAKFAST
     Dates: start: 20180806, end: 20180904
  30. EDIROL [Concomitant]
     Active Substance: ELDECALCITOL
     Dosage: 0.75 MICROGRAM, QD AFTER BREAKFAST
     Dates: start: 20180806, end: 20180904
  31. NORMAL SALINE [Concomitant]
     Active Substance: SODIUM CHLORIDE
     Dosage: 500 MILLIGRAM, SINGLE
     Dates: start: 20180804
  32. PHYSIO 140 [Concomitant]
     Active Substance: CALCIUM GLUCONATE\DEXTROSE\MAGNESIUM CHLORIDE\POTASSIUM CHLORIDE\SODIUM ACETATE\SODIUM CHLORIDE\TRISODIUM CITRATE DIHYDRATE
     Dosage: 1500 MILLILITER, QD
     Dates: start: 20180826, end: 20180826
  33. METILON [Concomitant]
     Active Substance: METAMIZOLE SODIUM
     Dosage: 1 MILLILITER, SINGLE
     Dates: start: 20180830, end: 20180830
  34. POTASSIUM L ASPARTATE K [Concomitant]
     Active Substance: POTASSIUM ASPARTATE
     Dosage: 20 MILLIEQUIVALENT, QD
     Dates: start: 20180810, end: 20180813
  35. MIYA-BM [Concomitant]
     Active Substance: CLOSTRIDIUM BUTYRICUM SPORES STRAIN M-55
     Dosage: 1 GRAM, TID  AFTER BREAKFAST/LUNCH/D INNER
     Dates: start: 20180817, end: 20180830
  36. ELNEOPA NO.1 [Concomitant]
     Active Substance: AMINO ACIDS\DEXTROSE\ELECTROLYTES NOS\MINERALS\VITAMINS
     Dosage: 1000 MILLILITER, SINGLE
     Dates: start: 20180904, end: 20180904
  37. WARFARIN [Concomitant]
     Active Substance: WARFARIN
     Dosage: 3.25 MILLIGRAM, QD
     Route: 048
  38. SODIUM PICOSULFATE [Concomitant]
     Active Substance: SODIUM PICOSULFATE
     Indication: CONSTIPATION
     Dosage: 10 MILLILITER AT ONSET OF CONSTIPATION
     Route: 048
     Dates: start: 20180806
  39. MANNIT T [Concomitant]
     Dosage: 500 MILLILITER, SINGLE
     Dates: start: 20180804, end: 20180804
  40. BFLUID [Concomitant]
     Active Substance: AMINO ACIDS\DEXTROSE\ELECTROLYTES NOS\VITAMINS
     Dosage: 500 MILLILITER, QD
     Dates: start: 20180805, end: 20180809
  41. POTASSIUM L ASPARTATE K [Concomitant]
     Active Substance: POTASSIUM ASPARTATE
     Dosage: 10 MILLIEQUIVALENT, TID
     Dates: start: 20180903, end: 20180903
  42. CIBENOL [Concomitant]
     Active Substance: CIFENLINE
     Dosage: 100 MILLIGRAM, BID AFTER BREAKFAST/LUNCH/DINNER
     Dates: start: 20180901, end: 20180904
  43. BIOFERMIN R [Concomitant]
     Active Substance: DIETARY SUPPLEMENT\PROBIOTICS
     Indication: DYSBIOSIS
     Dosage: 1 GRAM, TID AFTER BREAKFAST/LUNCH/DINNER
     Dates: start: 20180807, end: 20180816
  44. BIOFERMIN R [Concomitant]
     Active Substance: DIETARY SUPPLEMENT\PROBIOTICS
     Dosage: 6 GRAM, QD
     Dates: start: 20180901, end: 20180901
  45. NORMAL SALINE [Concomitant]
     Active Substance: SODIUM CHLORIDE
     Dosage: 60 MILLILITER, TOT
     Dates: start: 20180827
  46. NICARDIPINE [Concomitant]
     Active Substance: NICARDIPINE
     Dosage: 2 MILLIGRAM, QD
     Dates: start: 20180804, end: 20180805
  47. NICARDIPINE [Concomitant]
     Active Substance: NICARDIPINE
     Dosage: 2 MILLIGRAM, TID
     Dates: start: 20180829, end: 20180829
  48. NICARDIPINE [Concomitant]
     Active Substance: NICARDIPINE
     Dosage: 50 MILLIGRAM, TOT
     Dates: start: 20180806, end: 20180806
  49. NICARDIPINE [Concomitant]
     Active Substance: NICARDIPINE
     Dosage: 25 MILLIGRAM, SINGLE
     Dates: start: 20180808, end: 20180808
  50. PHYSIO 140 [Concomitant]
     Active Substance: CALCIUM GLUCONATE\DEXTROSE\MAGNESIUM CHLORIDE\POTASSIUM CHLORIDE\SODIUM ACETATE\SODIUM CHLORIDE\TRISODIUM CITRATE DIHYDRATE
     Dosage: 500 MILLILITER, QD
     Dates: start: 20180805, end: 20180813
  51. CEFMETAZOLE NA [Concomitant]
     Active Substance: CEFMETAZOLE
     Dosage: 1 GRAM, SINGLE
     Route: 042
     Dates: start: 20180805
  52. GLYCEREB [Concomitant]
     Active Substance: FRUCTOSE\GLYCERIN
     Dosage: 200 MILLILITER, BID
     Route: 041
     Dates: start: 20180805, end: 20180809
  53. BFLUID [Concomitant]
     Active Substance: AMINO ACIDS\DEXTROSE\ELECTROLYTES NOS\VITAMINS
     Dosage: 500 MILLILITER, BID
     Dates: start: 20180827, end: 20180828
  54. KCL [Concomitant]
     Active Substance: POTASSIUM CHLORIDE
     Indication: HYPOKALAEMIA
     Dosage: 20 MILLIEQUIVALENT, BID
     Dates: start: 20180827, end: 20180828
  55. VALTREX [Concomitant]
     Active Substance: VALACYCLOVIR HYDROCHLORIDE
     Dosage: 500 MILLIGRAM, TID
     Dates: start: 20180831
  56. SG [APRONAL;CAFFEINE;PARACETAMOL;PROPYPHENAZONE] [Concomitant]
     Dosage: 1 GRAM, BID
     Dates: start: 20180810, end: 20180810
  57. SG [APRONAL;CAFFEINE;PARACETAMOL;PROPYPHENAZONE] [Concomitant]
     Dosage: 1 GRAM, SINGLE
     Dates: start: 20180811, end: 20180811
  58. LIXIANA [Concomitant]
     Active Substance: EDOXABAN TOSYLATE
     Dosage: 30 MILLIGRAM, QD
     Route: 048
     Dates: start: 20180807
  59. KEPPRA [Concomitant]
     Active Substance: LEVETIRACETAM
     Dosage: 500 MILLIGRAM, BID AFTER BREAKFAST/DINNER
     Dates: start: 20180807, end: 20180904
  60. CARVEDILOL. [Concomitant]
     Active Substance: CARVEDILOL
     Dosage: 10 MILLIGRAM, BID AFTER BREAKFAST/DINNER
     Dates: start: 20180806, end: 20180830
  61. CARVEDILOL. [Concomitant]
     Active Substance: CARVEDILOL
     Dosage: 10 MILLIGRAM, BID AFTER BREAKFAST/DINNER
     Dates: start: 20180901, end: 20180904
  62. NICORANDIL [Concomitant]
     Active Substance: NICORANDIL
     Dosage: 5 MILLIGRAM, TID AFTER BREAKFAST/LUNCH/DINNER
     Dates: start: 20180806, end: 20180904
  63. CIBENOL [Concomitant]
     Active Substance: CIFENLINE
     Dosage: UNK
     Dates: start: 20180814
  64. NORMAL SALINE [Concomitant]
     Active Substance: SODIUM CHLORIDE
     Dosage: 100 MILLILITER, TID
     Dates: start: 20180807, end: 20180809
  65. NORMAL SALINE [Concomitant]
     Active Substance: SODIUM CHLORIDE
     Dosage: 20 MILLILITER, BID
     Dates: start: 20180901, end: 20180904
  66. PHYSIO 140 [Concomitant]
     Active Substance: CALCIUM GLUCONATE\DEXTROSE\MAGNESIUM CHLORIDE\POTASSIUM CHLORIDE\SODIUM ACETATE\SODIUM CHLORIDE\TRISODIUM CITRATE DIHYDRATE
     Dosage: 500 MILLILITER, BID
     Dates: start: 20180827, end: 20180903
  67. BFLUID [Concomitant]
     Active Substance: AMINO ACIDS\DEXTROSE\ELECTROLYTES NOS\VITAMINS
     Dosage: 500 MILLILITER, BID
     Dates: start: 20180826, end: 20180826
  68. POTASSIUM L ASPARTATE K [Concomitant]
     Active Substance: POTASSIUM ASPARTATE
     Indication: HYPOKALAEMIA
     Dosage: 10 MILLIEQUIVALENT, TID
     Dates: start: 20180807, end: 20180809
  69. KCL [Concomitant]
     Active Substance: POTASSIUM CHLORIDE
     Dosage: 40 MILLIEQUIVALENT, QD
     Dates: start: 20180901, end: 20180903
  70. SG [APRONAL;CAFFEINE;PARACETAMOL;PROPYPHENAZONE] [Concomitant]
     Dosage: 1 GRAM, SINGLE
     Dates: start: 20180806, end: 20180806
  71. SG [APRONAL;CAFFEINE;PARACETAMOL;PROPYPHENAZONE] [Concomitant]
     Dosage: 1 GRAM, SINGLE
     Dates: start: 20180826, end: 20180826
  72. BERIPLEX P/N [Suspect]
     Active Substance: COAGULATION FACTOR IX HUMAN\COAGULATION FACTOR VII HUMAN\COAGULATION FACTOR X HUMAN\PROTEIN C\PROTEIN S HUMAN\PROTHROMBIN
     Indication: SURGERY
     Dosage: 1500 INTERNATION UNIT
     Route: 042
     Dates: start: 20180804
  73. CIBENOL [Concomitant]
     Active Substance: CIFENLINE
     Dosage: 100 MILLIGRAM, TID AFTER BREAKFAST/LUNCH/DINNER
     Dates: start: 20180806, end: 20180813
  74. BIOFERMIN R [Concomitant]
     Active Substance: DIETARY SUPPLEMENT\PROBIOTICS
     Dosage: 1 GRAM, TID AFTER BREAKFAST/LUNCH/DINNER
     Dates: start: 20180828, end: 20180830
  75. BFLUID [Concomitant]
     Active Substance: AMINO ACIDS\DEXTROSE\ELECTROLYTES NOS\VITAMINS
     Dosage: 500 MILLILITER, SINGLE
     Dates: start: 20180825, end: 20180825
  76. BFLUID [Concomitant]
     Active Substance: AMINO ACIDS\DEXTROSE\ELECTROLYTES NOS\VITAMINS
     Dosage: 500 MILLILITER, QD
     Dates: start: 20180829, end: 20180903
  77. METILON [Concomitant]
     Active Substance: METAMIZOLE SODIUM
     Dosage: 1 MILLILITER, BID
     Dates: start: 20180828, end: 20180829
  78. KCL [Concomitant]
     Active Substance: POTASSIUM CHLORIDE
     Dosage: 40 MILLIEQUIVALENT, QD
     Dates: start: 20180829, end: 20180829
  79. PURSENNID [SENNOSIDE A+B CALCIUM] [Concomitant]
     Active Substance: SENNOSIDES A AND B
     Dosage: 24 MILLIGRAM, QD
     Dates: start: 20180807, end: 20180904
  80. RINDERON [BETAMETHASONE] [Concomitant]
     Active Substance: BETAMETHASONE
     Dosage: 4 MILLIGRAM, SINGLE
     Dates: start: 20180806
  81. CARVEDILOL. [Concomitant]
     Active Substance: CARVEDILOL
     Dosage: 5 MILLIGRAM, TID
     Dates: start: 20180831, end: 20180831
  82. LASIX [Concomitant]
     Active Substance: FUROSEMIDE
     Dosage: 10 MILLIGRAM, SINGLE
     Dates: start: 20180809
  83. BIOFERMIN R [Concomitant]
     Active Substance: DIETARY SUPPLEMENT\PROBIOTICS
     Dosage: 12 GRAM, QD
     Dates: start: 20180902, end: 20180902
  84. BIOFERMIN R [Concomitant]
     Active Substance: DIETARY SUPPLEMENT\PROBIOTICS
     Dosage: 6 GRAM, QD
     Dates: start: 20180903, end: 20180904
  85. PHYSIO 140 [Concomitant]
     Active Substance: CALCIUM GLUCONATE\DEXTROSE\MAGNESIUM CHLORIDE\POTASSIUM CHLORIDE\SODIUM ACETATE\SODIUM CHLORIDE\TRISODIUM CITRATE DIHYDRATE
     Dosage: 500 MILLILITER, BID
     Dates: start: 20180825, end: 20180825
  86. KN NO.3 [Concomitant]
     Active Substance: DEXTROSE\POTASSIUM CHLORIDE\SODIUM CHLORIDE\SODIUM LACTATE
     Dosage: 500 MILLILITER, QD
     Dates: start: 20180805, end: 20180812
  87. VALTREX [Concomitant]
     Active Substance: VALACYCLOVIR HYDROCHLORIDE
     Dosage: 500 MILLIGRAM, BID
     Dates: start: 20180901, end: 20180904

REACTIONS (1)
  - Septic shock [Unknown]

NARRATIVE: CASE EVENT DATE: 20180825
